FAERS Safety Report 21116855 (Version 2)
Quarter: 2022Q3

REPORT INFORMATION
  Report Type: Spontaneous
  Country: US (occurrence: US)
  Receive Date: 20220722
  Receipt Date: 20220804
  Transmission Date: 20221027
  Serious: Yes (Death, Hospitalization)
  Sender: FDA-Public Use
  Company Number: US-TEVA-2022-US-2055625

PATIENT
  Age: 18 Year
  Sex: Female

DRUGS (9)
  1. CISPLATIN [Suspect]
     Active Substance: CISPLATIN
     Indication: Endometrial cancer stage III
     Route: 065
  2. PACLITAXEL [Suspect]
     Active Substance: PACLITAXEL
     Indication: Endometrial cancer stage III
     Route: 065
  3. DOXORUBICIN [Suspect]
     Active Substance: DOXORUBICIN
     Indication: Endometrial cancer stage III
     Route: 065
  4. ARIMIDEX [Suspect]
     Active Substance: ANASTROZOLE
     Indication: Endometrial cancer stage III
     Route: 065
  5. ARIMIDEX [Suspect]
     Active Substance: ANASTROZOLE
     Indication: Hormone therapy
  6. MEGACE [Suspect]
     Active Substance: MEGESTROL ACETATE
     Indication: Endometrial cancer stage III
     Route: 065
  7. MEGACE [Suspect]
     Active Substance: MEGESTROL ACETATE
     Indication: Hormone therapy
  8. RIBOCICLIB [Suspect]
     Active Substance: RIBOCICLIB
     Indication: Endometrial cancer stage III
     Dosage: ADMINISTERED AS A CLINICAL TRIAL DRUG
     Route: 065
  9. ATEZOLIZUMAB [Suspect]
     Active Substance: ATEZOLIZUMAB
     Indication: Endometrial cancer stage III
     Dosage: ADMINISTERED AS A CLINICAL TRIAL DRUG
     Route: 065

REACTIONS (2)
  - Drug ineffective [Fatal]
  - Off label use [Unknown]
